FAERS Safety Report 10263065 (Version 2)
Quarter: 2014Q2

REPORT INFORMATION
  Report Type: Report from Study
  Country: US (occurrence: US)
  Receive Date: 20140626
  Receipt Date: 20140626
  Transmission Date: 20141212
  Serious: Yes (Other)
  Sender: FDA-Public Use
  Company Number: US-MYLANLABS-2014S1000213

PATIENT
  Age: 67 Year
  Sex: Female

DRUGS (16)
  1. CLOZAPINE TABLETS [Suspect]
     Indication: SCHIZOPHRENIA
     Route: 048
     Dates: start: 200607, end: 20140103
  2. CLOZAPINE TABLETS [Suspect]
     Indication: SCHIZOPHRENIA
     Route: 048
     Dates: start: 200607, end: 20140103
  3. TYLENOL [Concomitant]
  4. ATENOLOL [Concomitant]
  5. BENZTROPINE [Concomitant]
  6. CALCIUM [Concomitant]
  7. 080 ANTISMALLPOX [Concomitant]
  8. LORAZEPAM [Concomitant]
  9. OMEPRAZOLE [Concomitant]
  10. ROPINIROLE [Concomitant]
  11. TOPIRAMATE [Concomitant]
  12. VITAMIN D [Concomitant]
  13. HALDOL DECANOATE [Concomitant]
  14. LIDOCAINE [Concomitant]
  15. MIRALAX /00754501/ [Concomitant]
  16. TEMAZEPAM [Concomitant]

REACTIONS (2)
  - Granulocytopenia [Recovered/Resolved]
  - White blood cell count decreased [Recovered/Resolved]
